FAERS Safety Report 14777975 (Version 2)
Quarter: 2018Q2

REPORT INFORMATION
  Report Type: Report from Study
  Country: DE (occurrence: DE)
  Receive Date: 20180419
  Receipt Date: 20180508
  Transmission Date: 20180711
  Serious: Yes (Life-Threatening, Hospitalization)
  Sender: FDA-Public Use
  Company Number: DE-ACCORD-065748

PATIENT
  Age: 65 Year
  Sex: Male
  Weight: 90.6 kg

DRUGS (13)
  1. AQUAPHOR [Concomitant]
     Active Substance: PETROLATUM
     Indication: PRE-EXISTING DISEASE
     Route: 048
  2. DOCETAXEL. [Suspect]
     Active Substance: DOCETAXEL
     Indication: LUNG ADENOCARCINOMA
     Dosage: TOTAL DAILY DOSE: 150 MG/M2 BSA (BODY SURFACE AREA)
     Route: 042
     Dates: start: 20170418
  3. NORVASC [Concomitant]
     Active Substance: AMLODIPINE BESYLATE
     Indication: PROPHYLAXIS
     Route: 048
     Dates: start: 20170425
  4. ALDACTONE [Concomitant]
     Active Substance: SPIRONOLACTONE
     Indication: PROPHYLAXIS
     Route: 048
     Dates: start: 20161124
  5. PREDNISOLONE. [Concomitant]
     Active Substance: PREDNISOLONE
     Indication: PRE-EXISTING DISEASE
     Route: 048
  6. PANTOPRAZOLE [Concomitant]
     Active Substance: PANTOPRAZOLE
     Indication: PROPHYLAXIS
     Route: 048
     Dates: start: 20170501
  7. SYMBICORT [Concomitant]
     Active Substance: BUDESONIDE\FORMOTEROL FUMARATE DIHYDRATE
     Indication: PRE-EXISTING DISEASE
     Route: 055
  8. VARGATEF [Suspect]
     Active Substance: NINTEDANIB
     Indication: LUNG ADENOCARCINOMA
     Dosage: ALSO RECEIVED  UP TO 20-JUN-2017 (6 DAYS) AT DOSE OF 200 MG DAILY
     Route: 048
     Dates: start: 20170419, end: 20170424
  9. ASS RATIOPHARM [Concomitant]
     Active Substance: ASPIRIN
     Indication: PRE-EXISTING DISEASE
     Route: 048
     Dates: start: 20170414
  10. SODIUM CHLORIDE. [Concomitant]
     Active Substance: SODIUM CHLORIDE
     Indication: PROPHYLAXIS
     Route: 042
     Dates: start: 20170428
  11. LOSNESIUM [Concomitant]
     Indication: PROPHYLAXIS
     Route: 048
  12. BREATRIS GENUAIR [Concomitant]
     Indication: PRE-EXISTING DISEASE
     Route: 055
  13. LEVOTHYROXINE NATRIUM TEVA [Concomitant]
     Indication: PRE-EXISTING DISEASE
     Route: 048

REACTIONS (15)
  - Constipation [Recovered/Resolved]
  - Stomatitis [Recovered/Resolved with Sequelae]
  - Vision blurred [Not Recovered/Not Resolved]
  - White blood cell count decreased [Recovered/Resolved]
  - Weight decreased [Recovered/Resolved]
  - Hyponatraemia [Not Recovered/Not Resolved]
  - Abdominal pain upper [Recovered/Resolved]
  - Diarrhoea [Unknown]
  - Palmar-plantar erythrodysaesthesia syndrome [Not Recovered/Not Resolved]
  - C-reactive protein increased [Recovered/Resolved]
  - Decreased appetite [Recovered/Resolved]
  - Hypokalaemia [Recovered/Resolved]
  - Febrile neutropenia [Recovered/Resolved]
  - Nausea [Recovered/Resolved]
  - Bronchitis [Recovered/Resolved]

NARRATIVE: CASE EVENT DATE: 20170425
